FAERS Safety Report 4955467-7 (Version None)
Quarter: 2006Q1

REPORT INFORMATION
  Report Type: 
  Country: None (occurrence: None)
  Receive Date: 20060328
  Receipt Date: 20060223
  Transmission Date: 20060701
  Serious: Yes (Other)
  Sender: FDA-Public Use
  Company Number: US-GLAXOSMITHKLINE-A0596815A

PATIENT
  Age: 57 Year
  Sex: Female
  Weight: 75.5 kg

DRUGS (10)
  1. AVANDIA [Suspect]
     Indication: DRUG USE FOR UNKNOWN INDICATION
     Dosage: 8MG PER DAY
     Route: 048
     Dates: end: 20060215
  2. PAXIL [Concomitant]
     Indication: DEPRESSION
     Dosage: 20MG PER DAY
     Route: 048
  3. NORVASC [Concomitant]
     Indication: HYPERTENSION
     Dosage: 10MG PER DAY
     Route: 048
  4. LIPITOR [Concomitant]
     Dosage: 40MG PER DAY
     Route: 048
  5. ZETIA [Concomitant]
     Dosage: 10MG PER DAY
     Route: 048
  6. HUMALOG [Concomitant]
     Indication: DIABETES MELLITUS
     Dosage: 14UNIT THREE TIMES PER DAY
     Route: 058
  7. LANTUS [Concomitant]
     Indication: DIABETES MELLITUS
     Dosage: 120UNIT AT NIGHT
     Route: 058
  8. TENEX [Concomitant]
     Indication: HYPERTENSION
     Dosage: 1MG IN THE MORNING
     Route: 048
  9. CORGARD [Concomitant]
     Indication: HYPERTENSION
     Dosage: 80MG AT NIGHT
     Route: 048
  10. ASPIRIN [Concomitant]
     Indication: PROPHYLAXIS
     Dosage: 81MG PER DAY
     Route: 048

REACTIONS (2)
  - MACULAR OEDEMA [None]
  - VISUAL ACUITY REDUCED [None]
